FAERS Safety Report 4301341-9 (Version None)
Quarter: 2004Q1

REPORT INFORMATION
  Report Type: 
  Country: None (occurrence: None)
  Receive Date: 20040223
  Receipt Date: 20030318
  Transmission Date: 20041129
  Serious: No
  Sender: FDA-Public Use
  Company Number: US-GLAXOSMITHKLINE-A0400968A

PATIENT
  Sex: Female

DRUGS (2)
  1. NAVELBINE [Suspect]
     Route: 042
  2. HERCEPTIN [Concomitant]

REACTIONS (2)
  - COUGH [None]
  - RESPIRATORY TRACT IRRITATION [None]
